FAERS Safety Report 8061919-6 (Version None)
Quarter: 2012Q1

REPORT INFORMATION
  Report Type: 
  Country: None (occurrence: None)
  Receive Date: 20120117
  Receipt Date: 20120102
  Transmission Date: 20120608
  Serious: Yes (Other)
  Sender: FDA-Public Use
  Company Number: 2011-4279

PATIENT
  Age: 64 Year
  Sex: Female
  Weight: 74 kg

DRUGS (9)
  1. LISINOPRIL/HCTZ (PRINZIDE /00977901/) [Concomitant]
  2. SOMATULINE DEPOT [Suspect]
     Indication: ACROMEGALY
     Dosage: 120 MG (120 MG, 1 IN 28 D), SUBCUTANEOUS
     Route: 058
     Dates: start: 20100401
  3. CABERGOLINE [Concomitant]
  4. SIMVASTATIN [Concomitant]
  5. AMLODIPINE [Concomitant]
  6. SOMATULINE DEPOT [Suspect]
  7. METFORMIN HCL [Concomitant]
  8. METOPROLOL TARTRATE [Concomitant]
  9. VENLAFAXINE [Concomitant]

REACTIONS (5)
  - UTERINE DISORDER [None]
  - FLUSHING [None]
  - FLATULENCE [None]
  - DISEASE RECURRENCE [None]
  - HYPERPLASIA [None]
